FAERS Safety Report 6938505-1 (Version None)
Quarter: 2010Q3

REPORT INFORMATION
  Report Type: 
  Country: None (occurrence: None)
  Receive Date: 20100824
  Receipt Date: 20100820
  Transmission Date: 20110219
  Serious: Yes (Death)
  Sender: FDA-Public Use
  Company Number: DE-ASTRAZENECA-2010SE39195

PATIENT

DRUGS (1)
  1. NAROPIN [Suspect]
     Indication: ANAESTHESIA
     Route: 008

REACTIONS (1)
  - ACCIDENTAL OVERDOSE [None]
